FAERS Safety Report 8365399-2 (Version None)
Quarter: 2012Q2

REPORT INFORMATION
  Report Type: 
  Country: None (occurrence: None)
  Receive Date: 20120516
  Receipt Date: 20120509
  Transmission Date: 20120825
  Serious: Yes (Other)
  Sender: FDA-Public Use
  Company Number: PHHY2012US039393

PATIENT
  Age: 91 Year
  Sex: Female

DRUGS (1)
  1. ASPIRIN [Suspect]
     Indication: ARTHRITIS
     Dosage: 2 DF, AS NEEDED
     Route: 048
     Dates: start: 19550101

REACTIONS (4)
  - BREAST CANCER STAGE I [None]
  - NEOPLASM MALIGNANT [None]
  - HEART RATE DECREASED [None]
  - INCORRECT DRUG ADMINISTRATION DURATION [None]
